FAERS Safety Report 8261904-5 (Version None)
Quarter: 2012Q2

REPORT INFORMATION
  Report Type: 
  Country: None (occurrence: None)
  Receive Date: 20120402
  Receipt Date: 20120322
  Transmission Date: 20120825
  Serious: Yes (Death, Life-Threatening, Other)
  Sender: FDA-Public Use
  Company Number: 2012MA003892

PATIENT
  Age: 25 Year
  Sex: Female

DRUGS (5)
  1. MIDAZOLAM [Concomitant]
  2. SUXAMETHONIUM [Concomitant]
  3. PROPRANOLOL HCL [Suspect]
     Indication: ANXIETY
     Dosage: 10 MG
     Dates: start: 20111001
  4. MORPHINE [Concomitant]
  5. ALTEPLASE (ALTEPLASE) [Suspect]
     Indication: PULMONARY EMBOLISM
     Dosage: 50 MG;BID;IV
     Route: 042
     Dates: start: 20111001, end: 20111001

REACTIONS (15)
  - ELECTROCARDIOGRAM ST SEGMENT ELEVATION [None]
  - NEUTROPHIL COUNT DECREASED [None]
  - ELECTROCARDIOGRAM QT PROLONGED [None]
  - INJURY [None]
  - CARDIAC FAILURE [None]
  - PHAEOCHROMOCYTOMA [None]
  - METABOLIC ACIDOSIS [None]
  - HAEMOGLOBIN DECREASED [None]
  - HAEMORRHAGE [None]
  - CARDIAC ARREST [None]
  - PULSELESS ELECTRICAL ACTIVITY [None]
  - PULMONARY OEDEMA [None]
  - SINUS TACHYCARDIA [None]
  - PLEURAL EFFUSION [None]
  - ARTERIOSCLEROSIS [None]
